FAERS Safety Report 20466743 (Version 1)
Quarter: 2022Q1

REPORT INFORMATION
  Report Type: Spontaneous
  Country: GB (occurrence: GB)
  Receive Date: 20220213
  Receipt Date: 20220213
  Transmission Date: 20220423
  Serious: Yes (Other)
  Sender: FDA-Public Use
  Company Number: GB-MHRA-EYC 00272538

PATIENT
  Age: 53 Year
  Sex: Female
  Weight: 85 kg

DRUGS (1)
  1. LOSARTAN [Suspect]
     Active Substance: LOSARTAN
     Indication: Hypertension
     Dosage: 50 MILLIGRAM, ONCE A DAY
     Route: 048
     Dates: start: 20220127, end: 20220129

REACTIONS (1)
  - Dysuria [Recovering/Resolving]

NARRATIVE: CASE EVENT DATE: 20220127
